FAERS Safety Report 20700728 (Version 1)
Quarter: 2022Q2

REPORT INFORMATION
  Report Type: Spontaneous
  Country: US (occurrence: US)
  Receive Date: 20220412
  Receipt Date: 20220412
  Transmission Date: 20220721
  Serious: Yes (Other)
  Sender: FDA-Public Use
  Company Number: US-COLGATE PALMOLIVE COMPANY-20220400648

PATIENT

DRUGS (1)
  1. COLGATE OPTIC WHITE PROSERIES ENAMEL STRENGHT [Suspect]
     Active Substance: SODIUM MONOFLUOROPHOSPHATE
     Indication: Tooth discolouration
     Dosage: UNKNOWN DOSE
     Dates: start: 202203, end: 202203

REACTIONS (6)
  - Throat irritation [Recovering/Resolving]
  - Hypersensitivity [Recovering/Resolving]
  - Throat tightness [Recovering/Resolving]
  - Dyspnoea [Recovering/Resolving]
  - Injury [Recovering/Resolving]
  - Oropharyngeal pain [Recovering/Resolving]

NARRATIVE: CASE EVENT DATE: 20220301
